FAERS Safety Report 6583496-9 (Version None)
Quarter: 2010Q1

REPORT INFORMATION
  Report Type: 
  Country: None (occurrence: None)
  Receive Date: 20100216
  Receipt Date: 20100203
  Transmission Date: 20100710
  Serious: Yes (Other)
  Sender: FDA-Public Use
  Company Number: PHHY2010JP05192

PATIENT
  Age: 33 Year
  Sex: Female

DRUGS (4)
  1. VOLTAREN [Suspect]
     Indication: PAIN
     Dosage: UNK
     Route: 048
     Dates: start: 20100121, end: 20100124
  2. PLETAL [Suspect]
     Dosage: UNK
     Route: 048
     Dates: start: 20100117, end: 20100124
  3. EPADEL [Suspect]
     Dosage: UNK
     Route: 048
     Dates: start: 20100117, end: 20100124
  4. OMEPRAL [Suspect]
     Dosage: UNK
     Route: 048
     Dates: start: 20100122, end: 20100124

REACTIONS (2)
  - HEPATIC FUNCTION ABNORMAL [None]
  - WHITE BLOOD CELL COUNT DECREASED [None]
